FAERS Safety Report 10840742 (Version 1)
Quarter: 2015Q1

REPORT INFORMATION
  Report Type: Spontaneous
  Country: GB (occurrence: None)
  Receive Date: 20150218
  Receipt Date: 20150218
  Transmission Date: 20150721
  Serious: Yes (Life-Threatening)
  Sender: FDA-Public Use
  Company Number: FK201500742

PATIENT
  Age: 55 Year
  Sex: Female

DRUGS (25)
  1. PEMETREXED [Suspect]
     Active Substance: PEMETREXED
     Indication: LUNG NEOPLASM MALIGNANT
     Route: 042
     Dates: start: 20141209, end: 20141209
  2. HIZON HYOSCINE HYDROBROMIDE (HYOSCINE BUTYLBROMIDE) [Concomitant]
  3. IPRATROPIUM [Concomitant]
     Active Substance: IPRATROPIUM
  4. MORPHINE SULPHATE (MORPHINE SULFATE) [Concomitant]
  5. PARACETAMOL [Concomitant]
     Active Substance: ACETAMINOPHEN
  6. DOCUSATE [Concomitant]
     Active Substance: DOCUSATE
  7. METOCLOPRAMIDE. [Concomitant]
     Active Substance: METOCLOPRAMIDE
  8. MIDAZOLAM [Concomitant]
     Active Substance: MIDAZOLAM\MIDAZOLAM HYDROCHLORIDE
  9. SALBUTAMOL [Concomitant]
     Active Substance: ALBUTEROL
  10. TINZAPARIN [Concomitant]
     Active Substance: TINZAPARIN
  11. NEFOPAM [Concomitant]
     Active Substance: NEFOPAM
  12. CARBOPLATIN. [Suspect]
     Active Substance: CARBOPLATIN
     Indication: LUNG NEOPLASM MALIGNANT
     Route: 042
     Dates: start: 20141209, end: 20141209
  13. BIOTENE DRY MOUTH (BIOTENE) [Concomitant]
  14. CARBOCISTEINE [Concomitant]
     Active Substance: CARBOCYSTEINE
  15. DEXAMETHASONE. [Concomitant]
     Active Substance: DEXAMETHASONE
  16. FOLIC ACID. [Concomitant]
     Active Substance: FOLIC ACID
  17. PREDNISOLONE. [Concomitant]
     Active Substance: PREDNISOLONE
  18. CHLORHEXIDINE [Concomitant]
     Active Substance: CHLORHEXIDINE
  19. CODEINE PHOSPHATE [Concomitant]
     Active Substance: CODEINE PHOSPHATE
  20. LANSOPRAZOLE. [Concomitant]
     Active Substance: LANSOPRAZOLE
  21. LORAZEPAM. [Concomitant]
     Active Substance: LORAZEPAM
  22. PROPRANOLOL [Concomitant]
     Active Substance: PROPRANOLOL\PROPRANOLOL HYDROCHLORIDE
  23. AMITRIPTYLINE [Concomitant]
     Active Substance: AMITRIPTYLINE
  24. OLANZAPINE. [Concomitant]
     Active Substance: OLANZAPINE
  25. SENNA [Concomitant]
     Active Substance: SENNA LEAF\SENNOSIDES\SENNOSIDES A AND B

REACTIONS (4)
  - Pulmonary fibrosis [None]
  - Malignant neoplasm progression [None]
  - Lung cancer metastatic [None]
  - Hepatic lesion [None]

NARRATIVE: CASE EVENT DATE: 20141212
